FAERS Safety Report 9190928 (Version 1)
Quarter: 2013Q1

REPORT INFORMATION
  Report Type: Spontaneous
  Country: DE (occurrence: DE)
  Receive Date: 20130326
  Receipt Date: 20130326
  Transmission Date: 20140127
  Serious: Yes (Hospitalization)
  Sender: FDA-Public Use
  Company Number: DE-GLAXOSMITHKLINE-D0079219A

PATIENT
  Sex: Male

DRUGS (3)
  1. VOTRIENT [Suspect]
     Indication: RENAL CELL CARCINOMA
     Dosage: 800MG PER DAY
     Route: 048
  2. SUTENT [Concomitant]
     Indication: RENAL CELL CARCINOMA
     Route: 048
  3. TORISEL [Concomitant]
     Indication: RENAL CELL CARCINOMA
     Route: 042

REACTIONS (2)
  - Peripheral vascular disorder [Unknown]
  - Diarrhoea [Unknown]
